FAERS Safety Report 7341929-4 (Version None)
Quarter: 2011Q1

REPORT INFORMATION
  Report Type: 
  Country: None (occurrence: None)
  Receive Date: 20110309
  Receipt Date: 20110222
  Transmission Date: 20110831
  Serious: Yes (Hospitalization, Other)
  Sender: FDA-Public Use
  Company Number: IL-GENENTECH-313762

PATIENT
  Age: 57 Year
  Sex: Female

DRUGS (17)
  1. FLUDARA [Concomitant]
     Indication: NON-HODGKIN'S LYMPHOMA
     Dosage: UNK
  2. VANCOMYCIN [Concomitant]
     Indication: PRODUCT USED FOR UNKNOWN INDICATION
     Route: 065
  3. TAZOCIN [Concomitant]
     Indication: PRODUCT USED FOR UNKNOWN INDICATION
     Route: 065
  4. ELATROLET [Concomitant]
     Indication: PRODUCT USED FOR UNKNOWN INDICATION
     Route: 065
  5. K PHOSPHATE [Concomitant]
     Indication: PRODUCT USED FOR UNKNOWN INDICATION
     Route: 065
  6. MABTHERA [Suspect]
     Indication: NON-HODGKIN'S LYMPHOMA
     Dosage: 700 MG, UNK
     Route: 042
  7. HYDROXYDAUNORUBICIN [Concomitant]
     Indication: NON-HODGKIN'S LYMPHOMA
     Dosage: UNK
     Dates: start: 20080709
  8. SILVEROL [Concomitant]
     Indication: PRODUCT USED FOR UNKNOWN INDICATION
     Route: 065
  9. FEXOFENADINE [Concomitant]
     Indication: PRODUCT USED FOR UNKNOWN INDICATION
     Route: 065
  10. LYRICA [Concomitant]
     Indication: PRODUCT USED FOR UNKNOWN INDICATION
     Route: 065
  11. PHENERGAN [Concomitant]
     Indication: PRODUCT USED FOR UNKNOWN INDICATION
     Route: 065
  12. MAXITROL [Concomitant]
     Indication: PRODUCT USED FOR UNKNOWN INDICATION
     Route: 065
  13. POLYVIDONE [Concomitant]
     Indication: PRODUCT USED FOR UNKNOWN INDICATION
     Route: 065
  14. NEULASTIM [Suspect]
     Indication: PRODUCT USED FOR UNKNOWN INDICATION
     Dosage: UNK
     Route: 065
  15. ONCOVIN [Concomitant]
     Indication: NON-HODGKIN'S LYMPHOMA
     Dosage: UNK
     Dates: start: 20080709
  16. CYCLOPHOSPHAMIDE [Concomitant]
     Indication: NON-HODGKIN'S LYMPHOMA
     Dosage: UNK
     Dates: start: 20080709
  17. PREDNISONE [Concomitant]
     Indication: NON-HODGKIN'S LYMPHOMA
     Dosage: UNK
     Dates: start: 20080709

REACTIONS (20)
  - RASH [None]
  - STEVENS-JOHNSON SYNDROME [None]
  - GRANULOCYTOPENIA [None]
  - HEPATIC ENZYME INCREASED [None]
  - TOXIC EPIDERMAL NECROLYSIS [None]
  - THROMBOCYTOPENIA [None]
  - OEDEMA [None]
  - HYPERURICAEMIA [None]
  - NEUTROPENIA [None]
  - URTICARIA [None]
  - URINE ABNORMALITY [None]
  - DERMATITIS EXFOLIATIVE [None]
  - PYREXIA [None]
  - CHILLS [None]
  - LIVER DISORDER [None]
  - HEPATIC STEATOSIS [None]
  - PARAESTHESIA [None]
  - HYPERSENSITIVITY [None]
  - INFECTION [None]
  - FAT TISSUE INCREASED [None]
